FAERS Safety Report 6341558-5 (Version None)
Quarter: 2009Q3

REPORT INFORMATION
  Report Type: 
  Country: None (occurrence: None)
  Receive Date: 20090904
  Receipt Date: 20090824
  Transmission Date: 20100115
  Serious: Yes (Hospitalization)
  Sender: FDA-Public Use
  Company Number: IT-ELI_LILLY_AND_COMPANY-IT200908005114

PATIENT
  Age: 13 Year
  Sex: Female
  Weight: 68.8 kg

DRUGS (3)
  1. HUMATROPE [Suspect]
     Dosage: 0.033 MG/KG, DAILY (1/D) DIVIDED INTO 6 WEEKLY DOSES
     Route: 058
  2. LEVOTHYROXINE SODIUM [Concomitant]
     Dosage: ACCORDING TO BODY SURFACE
  3. HYDROCORTISONE [Concomitant]
     Dosage: ACCORDING TO BODY SURFACE

REACTIONS (1)
  - PANCREATITIS ACUTE [None]
